FAERS Safety Report 6166374-9 (Version None)
Quarter: 2009Q2

REPORT INFORMATION
  Report Type: 
  Country: None (occurrence: None)
  Receive Date: 20090424
  Receipt Date: 20090227
  Transmission Date: 20091009
  Serious: No
  Sender: FDA-Public Use
  Company Number: A0770704A

PATIENT
  Age: 62 Year
  Sex: Male

DRUGS (3)
  1. DEXEDRINE [Suspect]
     Indication: EMOTIONAL DISORDER
     Dosage: 15MG THREE TIMES PER DAY
     Route: 048
     Dates: start: 20071101
  2. CRESTOR [Concomitant]
  3. XANAX [Concomitant]

REACTIONS (1)
  - HEART RATE INCREASED [None]
